FAERS Safety Report 25804716 (Version 2)
Quarter: 2025Q3

REPORT INFORMATION
  Report Type: Report from Study
  Country: CA (occurrence: CA)
  Receive Date: 20250915
  Receipt Date: 20250918
  Transmission Date: 20251021
  Serious: No
  Sender: ABBVIE
  Company Number: CA-ABBVIE-6453683

PATIENT
  Sex: Female

DRUGS (1)
  1. SKYRIZI [Suspect]
     Active Substance: RISANKIZUMAB-RZAA
     Indication: Crohn^s disease
     Route: 058

REACTIONS (3)
  - Vasculitis [Unknown]
  - Oedema [Unknown]
  - Rash [Unknown]
